FAERS Safety Report 6549140-1 (Version None)
Quarter: 2010Q1

REPORT INFORMATION
  Report Type: 
  Country: None (occurrence: None)
  Receive Date: 20100119
  Receipt Date: 20091229
  Transmission Date: 20100710
  Serious: Yes (Other)
  Sender: FDA-Public Use
  Company Number: B0623867A

PATIENT
  Sex: Female

DRUGS (3)
  1. AMOXICILLIN AND CLAVULANATE POTASSIUM [Suspect]
     Indication: H1N1 INFLUENZA
     Dosage: TRANSPLACENTARY
     Route: 064
  2. CLARITHROMYCIN [Suspect]
     Indication: H1N1 INFLUENZA
     Dosage: TRANSPLACENTARY
     Route: 064
  3. OSELTAMIVIR PHOSPHATE [Suspect]
     Indication: H1N1 INFLUENZA
     Dosage: TRANSPLACENTARY
     Route: 064

REACTIONS (6)
  - CAESAREAN SECTION [None]
  - FOETAL DISTRESS SYNDROME [None]
  - H1N1 INFLUENZA [None]
  - MATERNAL CONDITION AFFECTING FOETUS [None]
  - MATERNAL DRUGS AFFECTING FOETUS [None]
  - VERTICAL INFECTION TRANSMISSION [None]
